FAERS Safety Report 6682801-2 (Version None)
Quarter: 2010Q2

REPORT INFORMATION
  Report Type: 
  Country: None (occurrence: None)
  Receive Date: 20100413
  Receipt Date: 20100329
  Transmission Date: 20101027
  Serious: Yes (Hospitalization)
  Sender: FDA-Public Use
  Company Number: KV201000057

PATIENT
  Age: 69 Year
  Sex: Female
  Weight: 85.1 kg

DRUGS (6)
  1. MORPHINE SULFATE [Suspect]
     Indication: DRUG USE FOR UNKNOWN INDICATION
     Dosage: 30 MG, TID, ORAL
     Route: 048
     Dates: start: 20080201, end: 20080501
  2. CLONAZEPAM [Concomitant]
  3. TRICOR /00499301/ (FENOFIBRATE) [Concomitant]
  4. BACLOFEN [Concomitant]
  5. LISINOPRIL [Concomitant]
  6. SIMVASTATIN [Concomitant]

REACTIONS (25)
  - ANAEMIA [None]
  - AORTIC ANEURYSM [None]
  - ARTHRALGIA [None]
  - CELLULITIS [None]
  - CEREBRAL INFARCTION [None]
  - COMPARTMENT SYNDROME [None]
  - CONFUSIONAL STATE [None]
  - DEEP VEIN THROMBOSIS [None]
  - DELIRIUM [None]
  - DEPRESSION [None]
  - DIABETES MELLITUS [None]
  - DIARRHOEA [None]
  - FALL [None]
  - HAEMATURIA [None]
  - HIP FRACTURE [None]
  - HYPOAESTHESIA [None]
  - HYPOKALAEMIA [None]
  - LEG AMPUTATION [None]
  - NASAL CONGESTION [None]
  - PLEURISY [None]
  - PNEUMONITIS [None]
  - PULMONARY EMBOLISM [None]
  - RHABDOMYOLYSIS [None]
  - TROPONIN INCREASED [None]
  - WOUND INFECTION [None]
